FAERS Safety Report 25841313 (Version 1)
Quarter: 2025Q3

REPORT INFORMATION
  Report Type: Spontaneous
  Country: EU (occurrence: EU)
  Receive Date: 20250924
  Receipt Date: 20250924
  Transmission Date: 20251020
  Serious: Yes (Hospitalization, Other)
  Sender: PFIZER
  Company Number: None

PATIENT
  Age: 52 Year
  Sex: Male

DRUGS (2)
  1. DOXORUBICIN HYDROCHLORIDE [Interacting]
     Active Substance: DOXORUBICIN HYDROCHLORIDE
     Indication: Breast cancer male
     Route: 042
     Dates: start: 20250325, end: 20250603
  2. CYCLOPHOSPHAMIDE [Interacting]
     Active Substance: CYCLOPHOSPHAMIDE
     Indication: Breast cancer male
     Route: 042
     Dates: start: 20250325, end: 20250603

REACTIONS (5)
  - Chest pain [Recovered/Resolved]
  - Palpitations [Recovered/Resolved]
  - Myocardial injury [Not Recovered/Not Resolved]
  - Troponin increased [Not Recovered/Not Resolved]
  - Labelled drug-drug interaction issue [Unknown]

NARRATIVE: CASE EVENT DATE: 20250325
